FAERS Safety Report 9242823 (Version 2)
Quarter: 2013Q2

REPORT INFORMATION
  Report Type: Spontaneous
  Country: AU (occurrence: AU)
  Receive Date: 20130419
  Receipt Date: 20130530
  Transmission Date: 20140414
  Serious: No
  Sender: FDA-Public Use
  Company Number: AU-NOVOPROD-375528

PATIENT
  Sex: Male

DRUGS (3)
  1. NOVOMIX 30 FLEXPEN [Suspect]
     Indication: PRODUCT USED FOR UNKNOWN INDICATION
     Dosage: 60 U, QD (26 U MORNING + 34 U NIGHT BEFORE FOOD)
     Route: 065
  2. NOVOMIX 30 FLEXPEN [Suspect]
     Dosage: 56 U, QD (24 U MORNING + 32 U NIGHT BEFORE FOOD)
     Route: 065
  3. NOVOMIX 30 FLEXPEN [Suspect]
     Dosage: 44 U, QD (14 U MORNING+30 U NIGHT)
     Route: 065

REACTIONS (3)
  - Blood glucose increased [Unknown]
  - Hypoglycaemia [Unknown]
  - Wrong technique in drug usage process [Unknown]
